FAERS Safety Report 9699941 (Version 1)
Quarter: 2013Q4

REPORT INFORMATION
  Report Type: Spontaneous
  Country: FR (occurrence: FR)
  Receive Date: 20131121
  Receipt Date: 20131121
  Transmission Date: 20140711
  Serious: Yes (Hospitalization)
  Sender: FDA-Public Use
  Company Number: FR-ACTELION-A-CH2013-91322

PATIENT
  Age: 47 Year
  Sex: Male

DRUGS (5)
  1. TRACLEER [Suspect]
     Indication: PULMONARY ARTERIAL HYPERTENSION
     Dosage: 125 MG, BID
     Route: 048
     Dates: start: 201212
  2. WILZIN [Concomitant]
     Dosage: 50 MG, BID
     Route: 048
     Dates: start: 201212
  3. LASILIX [Concomitant]
     Dosage: 20 MG, OD
     Route: 048
  4. ALLOPURINOL [Concomitant]
     Dosage: 200 MG, OD
     Route: 048
  5. RAMIPRIL [Concomitant]
     Dosage: 2.5 MG, BID
     Route: 048

REACTIONS (6)
  - Leukopenia [Not Recovered/Not Resolved]
  - Neutropenia [Recovered/Resolved]
  - Thrombocytopenia [Not Recovered/Not Resolved]
  - Anaemia [Not Recovered/Not Resolved]
  - Blood copper decreased [Not Recovered/Not Resolved]
  - Lymphopenia [Not Recovered/Not Resolved]
